FAERS Safety Report 18901299 (Version 2)
Quarter: 2021Q1

REPORT INFORMATION
  Report Type: Spontaneous
  Country: US (occurrence: US)
  Receive Date: 20210216
  Receipt Date: 20210309
  Transmission Date: 20210420
  Serious: Yes (Other)
  Sender: FDA-Public Use
  Company Number: US-NOVOPROD-787140

PATIENT
  Age: 64 Year
  Sex: Male

DRUGS (5)
  1. ELIQUIS [Concomitant]
     Active Substance: APIXABAN
     Indication: ATRIAL FIBRILLATION
     Dosage: UNK
     Route: 065
     Dates: end: 202008
  2. TRESIBA [Concomitant]
     Active Substance: INSULIN DEGLUDEC
     Indication: PRODUCT USED FOR UNKNOWN INDICATION
     Dosage: 10 IU
     Route: 058
     Dates: start: 20200801
  3. VICTOZA [Suspect]
     Active Substance: LIRAGLUTIDE
     Dosage: 1.2 MG
     Route: 065
  4. VICTOZA [Suspect]
     Active Substance: LIRAGLUTIDE
     Indication: PRODUCT USED FOR UNKNOWN INDICATION
     Dosage: 1.8 MG
     Route: 065
     Dates: start: 20180801
  5. VASCEPA [Concomitant]
     Active Substance: ICOSAPENT ETHYL
     Indication: ATRIAL FIBRILLATION
     Dosage: UNK
     Route: 065
     Dates: start: 202008

REACTIONS (10)
  - Astigmatism [Not Recovered/Not Resolved]
  - Vomiting [Recovered/Resolved]
  - Rash [Not Recovered/Not Resolved]
  - Allergy to arthropod bite [Unknown]
  - Penile discharge [Not Recovered/Not Resolved]
  - Hyperhidrosis [Unknown]
  - Prostate cancer [Recovered/Resolved]
  - Skin exfoliation [Not Recovered/Not Resolved]
  - Night sweats [Not Recovered/Not Resolved]
  - Glycosylated haemoglobin increased [Unknown]

NARRATIVE: CASE EVENT DATE: 20191001
